FAERS Safety Report 4315581-6 (Version None)
Quarter: 2004Q1

REPORT INFORMATION
  Report Type: 
  Country: None (occurrence: None)
  Receive Date: 20040311
  Receipt Date: 20040304
  Transmission Date: 20041129
  Serious: Yes (Hospitalization)
  Sender: FDA-Public Use
  Company Number: FR-BRISTOL-MYERS SQUIBB COMPANY-12525325

PATIENT
  Age: 78 Year
  Sex: Male

DRUGS (4)
  1. APROVEL TABS 300 MG [Suspect]
     Route: 048
     Dates: start: 20040224, end: 20040304
  2. PREVISCAN [Concomitant]
  3. LASILIX [Concomitant]
  4. MOPRAL [Concomitant]

REACTIONS (1)
  - CONFUSIONAL STATE [None]
